FAERS Safety Report 16492018 (Version 1)
Quarter: 2020Q3

REPORT INFORMATION
  Report Type: Spontaneous
  Country: HU (occurrence: HU)
  Receive Date: 20190628
  Receipt Date: 20190628
  Transmission Date: 20201105
  Serious: Yes (Other)
  Sender: FDA-Public Use
  Company Number: HU-ROCHE-2344021

PATIENT
  Sex: Female

DRUGS (8)
  1. IBANDRONIC ACID. [Suspect]
     Active Substance: IBANDRONIC ACID
     Indication: BREAST CANCER
     Route: 048
     Dates: start: 201809
  2. EPIRUBICIN [Suspect]
     Active Substance: EPIRUBICIN
     Indication: BREAST CANCER
     Dosage: CYCLIC, 3 CYCLES
     Route: 065
     Dates: start: 201809, end: 201811
  3. PERTUZUMAB. [Concomitant]
     Active Substance: PERTUZUMAB
     Dosage: CYCLIC
     Route: 065
     Dates: start: 201811, end: 201901
  4. TRASTUZUMAB. [Concomitant]
     Active Substance: TRASTUZUMAB
     Indication: BREAST CANCER
     Dosage: CYCLIC, 3 CYCLES
     Route: 065
     Dates: start: 201811, end: 201901
  5. TRASTUZUMAB. [Concomitant]
     Active Substance: TRASTUZUMAB
     Route: 065
     Dates: start: 201811, end: 201901
  6. DOCETAXEL. [Suspect]
     Active Substance: DOCETAXEL
     Indication: BREAST CANCER
     Dosage: CYCLIC, 3 CYCLES
     Route: 065
     Dates: start: 201811, end: 201811
  7. CYCLOPHOSPHAMIDE. [Suspect]
     Active Substance: CYCLOPHOSPHAMIDE
     Indication: BREAST CANCER
     Dosage: CYCLIC, 3 CYCLES
     Route: 065
     Dates: start: 201809, end: 201811
  8. PERTUZUMAB. [Concomitant]
     Active Substance: PERTUZUMAB
     Indication: BREAST CANCER
     Route: 065
     Dates: start: 201811, end: 201901

REACTIONS (4)
  - Limb injury [Unknown]
  - Invasive ductal breast carcinoma [Unknown]
  - Cancer pain [Unknown]
  - Metastases to bone [Unknown]

NARRATIVE: CASE EVENT DATE: 201809
